FAERS Safety Report 5231920-6 (Version None)
Quarter: 2007Q1

REPORT INFORMATION
  Report Type: 
  Country: None (occurrence: None)
  Receive Date: 20061201
  Receipt Date: 20060920
  Transmission Date: 20070707
  Serious: No
  Sender: FDA-Public Use
  Company Number: 2006PV021651

PATIENT
  Age: 46 Year
  Sex: Female
  Weight: 105.2345 kg

DRUGS (4)
  1. BYETTA [Suspect]
     Indication: DRUG USE FOR UNKNOWN INDICATION
     Dosage: 5 MCG;BID;SC
     Route: 058
     Dates: start: 20060823
  2. AVANDIA [Concomitant]
  3. METFORMIN HCL [Concomitant]
  4. ALTACE [Concomitant]

REACTIONS (7)
  - DIARRHOEA [None]
  - INJECTION SITE BRUISING [None]
  - INJECTION SITE ERYTHEMA [None]
  - INJECTION SITE HAEMORRHAGE [None]
  - INJECTION SITE NODULE [None]
  - INJECTION SITE PAIN [None]
  - WEIGHT DECREASED [None]
